FAERS Safety Report 8494653-9 (Version None)
Quarter: 2012Q2

REPORT INFORMATION
  Report Type: 
  Country: None (occurrence: None)
  Receive Date: 20120627
  Receipt Date: 20120613
  Transmission Date: 20120825
  Serious: Yes (Other)
  Sender: FDA-Public Use
  Company Number: KAD201206-000344

PATIENT
  Age: 35 Year
  Sex: Female

DRUGS (2)
  1. INTERFERON ALFACON-1 (INTERFERON ALFACON-1) [Suspect]
  2. RIBAVIRIN [Suspect]

REACTIONS (1)
  - NERVOUS SYSTEM DISORDER [None]
